FAERS Safety Report 4274097-6 (Version None)
Quarter: 2004Q1

REPORT INFORMATION
  Report Type: 
  Country: None (occurrence: None)
  Receive Date: 20040120
  Receipt Date: 20031211
  Transmission Date: 20041129
  Serious: Yes (Life-Threatening)
  Sender: FDA-Public Use
  Company Number: FR-GLAXOSMITHKLINE-B0317633A

PATIENT
  Age: 50 Year
  Sex: Female

DRUGS (20)
  1. AUGMENTIN [Suspect]
     Indication: PHARYNGOLARYNGEAL PAIN
     Dosage: 6G PER DAY
     Route: 048
     Dates: start: 20031029, end: 20031105
  2. GARDENAL [Suspect]
     Dosage: 800MG PER DAY
     Route: 065
     Dates: start: 20031027, end: 20031101
  3. PRIMPERAN TAB [Suspect]
     Route: 065
     Dates: start: 20031026, end: 20031029
  4. ACETAMINOPHEN [Suspect]
     Dosage: 4G PER DAY
     Route: 042
     Dates: start: 20031026, end: 20031029
  5. PREVISCAN [Suspect]
     Route: 048
     Dates: start: 20031111, end: 20031113
  6. DUPHALAC [Concomitant]
     Route: 048
  7. PHOSPHONEUROS [Concomitant]
     Route: 048
  8. ACUPAN [Concomitant]
     Route: 065
  9. POLARAMINE [Concomitant]
     Route: 065
  10. VITAMIN B1-B6 [Concomitant]
     Route: 065
  11. HEPARIN [Concomitant]
     Indication: THROMBOPHLEBITIS
     Route: 065
  12. FRAXODI [Concomitant]
     Indication: THROMBOPHLEBITIS
     Route: 058
  13. ZOVIRAX [Concomitant]
     Route: 065
  14. SOLU-MEDROL [Concomitant]
     Route: 065
  15. SOLU-MEDROL [Concomitant]
     Route: 065
  16. CLARITIN [Concomitant]
     Route: 065
  17. MYDRIATICUM [Concomitant]
     Route: 047
  18. CERNEVIT-12 [Concomitant]
     Route: 065
  19. PREVISCAN [Concomitant]
     Indication: THROMBOPHLEBITIS
     Route: 048
  20. VITAMIN C [Concomitant]
     Route: 065

REACTIONS (14)
  - ANAEMIA [None]
  - DERMATITIS BULLOUS [None]
  - ERYTHEMA [None]
  - FACE OEDEMA [None]
  - GENITAL ULCERATION [None]
  - INFLAMMATION [None]
  - LEUKOPENIA [None]
  - LOCALISED OEDEMA [None]
  - PRURITUS GENERALISED [None]
  - PYREXIA [None]
  - RASH [None]
  - STAPHYLOCOCCAL BACTERAEMIA [None]
  - TOXIC EPIDERMAL NECROLYSIS [None]
  - VOMITING [None]
